FAERS Safety Report 9989244 (Version 1)
Quarter: 2014Q1

REPORT INFORMATION
  Report Type: Spontaneous
  Country: SI (occurrence: SI)
  Receive Date: 20140310
  Receipt Date: 20140310
  Transmission Date: 20141002
  Serious: Yes (Hospitalization, Disabling)
  Sender: FDA-Public Use
  Company Number: SI-JNJFOC-20140303090

PATIENT
  Age: 46 Year
  Sex: Male
  Weight: 70 kg

DRUGS (4)
  1. XARELTO [Suspect]
     Indication: EMBOLISM VENOUS
     Route: 048
     Dates: start: 20130726
  2. XARELTO [Suspect]
     Indication: EMBOLISM VENOUS
     Route: 048
     Dates: end: 20131107
  3. XARELTO [Suspect]
     Indication: PELVIC VENOUS THROMBOSIS
     Route: 048
     Dates: start: 20130726
  4. XARELTO [Suspect]
     Indication: PELVIC VENOUS THROMBOSIS
     Route: 048
     Dates: end: 20131107

REACTIONS (3)
  - Pelvic venous thrombosis [Not Recovered/Not Resolved]
  - Vena cava thrombosis [Not Recovered/Not Resolved]
  - Joint swelling [Not Recovered/Not Resolved]
